FAERS Safety Report 23834941 (Version 1)
Quarter: 2024Q2

REPORT INFORMATION
  Report Type: Spontaneous
  Country: FR (occurrence: FR)
  Receive Date: 20240509
  Receipt Date: 20240509
  Transmission Date: 20240715
  Serious: Yes (Death, Life-Threatening, Hospitalization, Other)
  Sender: FDA-Public Use
  Company Number: FR-MYLANLABS-2016M1033508

PATIENT
  Age: 62 Year
  Sex: Female

DRUGS (3)
  1. TACROLIMUS [Suspect]
     Active Substance: TACROLIMUS
     Indication: Immunosuppressant drug therapy
     Dosage: UNK
  2. PREDNISONE [Suspect]
     Active Substance: PREDNISONE
     Indication: Immunosuppressant drug therapy
     Dosage: UNK
  3. MYCOPHENOLATE MOFETIL [Suspect]
     Active Substance: MYCOPHENOLATE MOFETIL
     Indication: Immunosuppressant drug therapy
     Dosage: UNK

REACTIONS (19)
  - Low cardiac output syndrome [Fatal]
  - Pulmonary oedema [Fatal]
  - Coagulopathy [Fatal]
  - Metabolic disorder [Fatal]
  - Cardiorenal syndrome [Fatal]
  - Hypovolaemia [Fatal]
  - Multiple organ dysfunction syndrome [Fatal]
  - Systemic inflammatory response syndrome [Fatal]
  - Respiratory acidosis [Fatal]
  - Lung disorder [Fatal]
  - Acute kidney injury [Fatal]
  - Renal failure [Fatal]
  - Acute respiratory distress syndrome [Fatal]
  - Respiratory failure [Fatal]
  - Sepsis [Fatal]
  - Aspergillus infection [Fatal]
  - Aspergillus infection [Fatal]
  - Cytomegalovirus infection reactivation [Fatal]
  - Toxoplasmosis [Fatal]
